FAERS Safety Report 21122700 (Version 1)
Quarter: 2022Q3

REPORT INFORMATION
  Report Type: Spontaneous
  Country: DE (occurrence: DE)
  Receive Date: 20220723
  Receipt Date: 20220723
  Transmission Date: 20221026
  Serious: Yes (Hospitalization, Congenital Anomaly)
  Sender: FDA-Public Use
  Company Number: None

PATIENT
  Age: 1 Day
  Sex: Male
  Weight: 4.31 kg

DRUGS (8)
  1. AMITRIPTYLINE [Suspect]
     Active Substance: AMITRIPTYLINE
     Indication: Depression
     Dosage: 75 MG/D
     Dates: start: 20200913, end: 20210627
  2. MEPERIDINE [Concomitant]
     Active Substance: MEPERIDINE
     Indication: Migraine
     Dosage: 1000 MG/D
     Dates: start: 20210319, end: 20210522
  3. MOMETASONE [Concomitant]
     Active Substance: MOMETASONE
     Indication: Chronic sinusitis
  4. ACETAMINOPHEN [Concomitant]
     Active Substance: ACETAMINOPHEN
     Indication: Migraine
     Dosage: 1000 MG/D (UP TO 500, IF REQUIRED)
  5. BOOSTRIX [Concomitant]
     Active Substance: TETANUS TOXOID, REDUCED DIPHTHERIA TOXOID AND ACELLULAR PERTUSSIS VACCINE, ADSORBED ANTIGENS
     Indication: Immunisation
     Dates: start: 20210504, end: 20210504
  6. LARYNGOMEDIN N [Concomitant]
     Indication: Tonsillitis
  7. INFLUENZA VIRUS VACCINE [Concomitant]
     Active Substance: INFLUENZA VIRUS VACCINE
     Indication: Immunisation
  8. MICROLAX [Concomitant]
     Indication: Constipation

REACTIONS (2)
  - Foetal exposure during pregnancy [Unknown]
  - Cleft palate [Recovered/Resolved with Sequelae]

NARRATIVE: CASE EVENT DATE: 20210601
